FAERS Safety Report 6291729-1 (Version None)
Quarter: 2009Q3

REPORT INFORMATION
  Report Type: 
  Country: None (occurrence: None)
  Receive Date: 20090730
  Receipt Date: 20090722
  Transmission Date: 20100115
  Serious: Yes (Other)
  Sender: FDA-Public Use
  Company Number: PHHY2009ES30066

PATIENT
  Age: 49 Year

DRUGS (1)
  1. TRILEPTAL [Suspect]
     Dosage: 150 MG
     Route: 048
     Dates: end: 20090605

REACTIONS (2)
  - HYPONATRAEMIA [None]
  - INAPPROPRIATE ANTIDIURETIC HORMONE SECRETION [None]
